FAERS Safety Report 8492020-5 (Version None)
Quarter: 2012Q2

REPORT INFORMATION
  Report Type: 
  Country: None (occurrence: None)
  Receive Date: 20120627
  Receipt Date: 20120612
  Transmission Date: 20120825
  Serious: Yes (Hospitalization)
  Sender: FDA-Public Use
  Company Number: 2012SGN00239

PATIENT
  Age: 35 Year
  Sex: Male
  Weight: 110.9 kg

DRUGS (8)
  1. NAPROSYN [Concomitant]
  2. POTASSIUM CHLORIDE [Concomitant]
  3. ANTISPASMODICS/ ANTICHOLINERGICS [Concomitant]
  4. BRENTUXIMAB VEDOTIN (BRENTUXIMAB VEDOTIN) INJECTION [Suspect]
     Indication: NON-HODGKIN'S LYMPHOMA
     Dosage: 1.8 MG/KG, Q21D
     Dates: start: 20120514, end: 20120514
  5. IRON [Concomitant]
  6. PROTONIX [Concomitant]
  7. ACETAMINOPHEN [Concomitant]
  8. MULTIVITAMINS (ASCORBIC ACID, ERGOCALCIFEROL, FOLIC ACID, NICOTINAMIDE [Concomitant]

REACTIONS (8)
  - HYPONATRAEMIA [None]
  - ATELECTASIS [None]
  - HYPOKALAEMIA [None]
  - FATIGUE [None]
  - HYPERGLYCAEMIA [None]
  - HYPOVENTILATION [None]
  - ESCHERICHIA URINARY TRACT INFECTION [None]
  - DECREASED APPETITE [None]
